FAERS Safety Report 6912254-8 (Version None)
Quarter: 2010Q3

REPORT INFORMATION
  Report Type: 
  Country: None (occurrence: None)
  Receive Date: 20100806
  Receipt Date: 20080125
  Transmission Date: 20110219
  Serious: No
  Sender: FDA-Public Use
  Company Number: US-PFIZER INC-2007108059

PATIENT
  Sex: Female
  Weight: 49.44 kg

DRUGS (4)
  1. DETROL LA [Suspect]
     Indication: MICTURITION URGENCY
     Route: 048
     Dates: start: 20050701
  2. DETROL LA [Suspect]
     Indication: ENURESIS
  3. NEXIUM [Concomitant]
     Indication: GASTROOESOPHAGEAL REFLUX DISEASE
  4. FOSAMAX [Concomitant]

REACTIONS (2)
  - ALOPECIA [None]
  - BODY HEIGHT DECREASED [None]
